FAERS Safety Report 8960697 (Version 2)
Quarter: 2012Q4

REPORT INFORMATION
  Report Type: 
  Country: US (occurrence: US)
  Receive Date: 20121212
  Receipt Date: 20121219
  Transmission Date: 20130627
  Serious: Yes (Other)
  Sender: FDA-Public Use
  Company Number: CHPA2012US025048

PATIENT
  Age: 66 Year
  Sex: Male

DRUGS (1)
  1. EXCEDRIN EXTRA STRENGTH [Suspect]
     Indication: MIGRAINE
     Dosage: 2 DF, QD, as needed
     Route: 048

REACTIONS (3)
  - Myocardial infarction [Unknown]
  - Migraine [Unknown]
  - Disease recurrence [Unknown]
